FAERS Safety Report 9422656 (Version 2)
Quarter: 2013Q3

REPORT INFORMATION
  Report Type: Spontaneous
  Country: US (occurrence: US)
  Receive Date: 20130726
  Receipt Date: 20130729
  Transmission Date: 20140515
  Serious: No
  Sender: FDA-Public Use
  Company Number: US-009507513-1307USA005140

PATIENT
  Sex: Female

DRUGS (1)
  1. CLARITIN [Suspect]
     Indication: PRODUCT USED FOR UNKNOWN INDICATION
     Dosage: 5 MG, ONCE
     Route: 048
     Dates: start: 20130627, end: 20130627

REACTIONS (2)
  - Urinary hesitation [Not Recovered/Not Resolved]
  - Dysuria [Not Recovered/Not Resolved]
